FAERS Safety Report 6376482-5 (Version None)
Quarter: 2009Q3

REPORT INFORMATION
  Report Type: 
  Country: None (occurrence: None)
  Receive Date: 20090922
  Receipt Date: 20090922
  Transmission Date: 20100115
  Serious: Yes (Hospitalization)
  Sender: FDA-Public Use
  Company Number: None

PATIENT
  Age: 71 Year
  Sex: Male

DRUGS (12)
  1. AMIODARONE HCL [Suspect]
     Indication: ARRHYTHMIA PROPHYLAXIS
     Dosage: 700MG DAILY IV DRIP
     Route: 041
     Dates: start: 20090703, end: 20090706
  2. AMIODARONE HCL [Suspect]
     Indication: ARRHYTHMIA PROPHYLAXIS
     Dosage: 200MG BID PO
     Route: 048
     Dates: start: 20090707, end: 20090720
  3. CEFTRIAXONE [Concomitant]
  4. VANCOMYCIN [Concomitant]
  5. IRON POLYSACCHARIDE [Concomitant]
  6. INSULIN ASPART AND INSULIN GLARGINE [Concomitant]
  7. LEVOTHYROXINE SODIUM [Concomitant]
  8. METOPROLOL [Concomitant]
  9. MULTI-VITAMIN [Concomitant]
  10. WARFARIN [Concomitant]
  11. PANTOPRAZOLE SODIUM [Concomitant]
  12. PRAVASTATIN [Concomitant]

REACTIONS (8)
  - BACTERAEMIA [None]
  - BLOOD COUNT ABNORMAL [None]
  - CONTINUOUS HAEMODIAFILTRATION [None]
  - CORONARY ARTERY BYPASS [None]
  - ENDOCARDITIS BACTERIAL [None]
  - FEBRILE NEUTROPENIA [None]
  - RENAL FAILURE ACUTE [None]
  - WHITE BLOOD CELL COUNT DECREASED [None]
